FAERS Safety Report 14735326 (Version 2)
Quarter: 2018Q2

REPORT INFORMATION
  Report Type: Report from Study
  Country: MX (occurrence: MX)
  Receive Date: 20180409
  Receipt Date: 20180419
  Transmission Date: 20180711
  Serious: Yes (Hospitalization)
  Sender: FDA-Public Use
  Company Number: MX-ROCHE-2103036

PATIENT
  Age: 28 Year
  Sex: Female
  Weight: 44 kg

DRUGS (18)
  1. LYSINE CLONIXINATE [Concomitant]
     Route: 065
     Dates: start: 20180331
  2. MYCOPHENOLATE MOFETIL. [Suspect]
     Active Substance: MYCOPHENOLATE MOFETIL
     Indication: LUPUS NEPHRITIS
     Dosage: ON DAYS 1, 15, 168, AND 182?STARTING DOSE OF 1500 MG/DAY (AS PER PROTOCOL)?DATE OF MOST RECENT DOSE
     Route: 048
  3. VANCOMYCIN [Concomitant]
     Active Substance: VANCOMYCIN
     Route: 042
     Dates: start: 20180403, end: 20180404
  4. LYSINE CLONIXINATE [Concomitant]
     Route: 042
     Dates: start: 20180330, end: 20180330
  5. CEFTRIAXONE. [Concomitant]
     Active Substance: CEFTRIAXONE
     Route: 042
     Dates: start: 20180403, end: 20180404
  6. ENOXAPARIN [Concomitant]
     Active Substance: ENOXAPARIN
     Indication: THROMBOSIS PROPHYLAXIS
  7. PREDNISONE. [Concomitant]
     Active Substance: PREDNISONE
     Route: 048
  8. MAGNESIUM SULFATE. [Concomitant]
     Active Substance: MAGNESIUM SULFATE
     Route: 065
     Dates: start: 20180331
  9. ACETAMINOPHEN. [Concomitant]
     Active Substance: ACETAMINOPHEN
     Indication: LUPUS NEPHRITIS
     Route: 065
     Dates: start: 20180314, end: 20180314
  10. CEFOTAXIME [Concomitant]
     Active Substance: CEFOTAXIME SODIUM
     Route: 042
     Dates: start: 20180401, end: 20180405
  11. CALCIUM GLUCONATE. [Concomitant]
     Active Substance: CALCIUM GLUCONATE
  12. ENALAPRIL [Concomitant]
     Active Substance: ENALAPRIL
     Route: 048
     Dates: start: 20170821
  13. PREDNISONE. [Concomitant]
     Active Substance: PREDNISONE
     Indication: LUPUS NEPHRITIS
     Route: 048
     Dates: start: 20171221
  14. CHOLECALCIFEROL [Concomitant]
     Active Substance: CHOLECALCIFEROL
     Route: 048
     Dates: start: 20170821
  15. ACETAMINOPHEN. [Concomitant]
     Active Substance: ACETAMINOPHEN
     Route: 042
     Dates: start: 20180331, end: 20180409
  16. OMEPRAZOLE. [Concomitant]
     Active Substance: OMEPRAZOLE
     Route: 042
     Dates: start: 20180331, end: 20180409
  17. PLACEBO [Suspect]
     Active Substance: UNSPECIFIED INGREDIENT
     Indication: LUPUS NEPHRITIS
     Dosage: DATE OF MOST RECENT DOSE OF BLINDED OBINUTUZUMAB PRIOR TO ADVERSE EVENT (AE) ONSET: 14/MAR/2018?STAR
     Route: 042
     Dates: start: 20170921
  18. PLACEBO [Suspect]
     Active Substance: UNSPECIFIED INGREDIENT
     Indication: LUPUS NEPHRITIS
     Dosage: DATE OF MOST RECENT DOSE DOSE OF BLINDED METHYLPREDNISOLONE PRIOR TO ADVERSE EVENT WAS ON 14/MAR/201
     Route: 042
     Dates: start: 20170921

REACTIONS (1)
  - Headache [Recovering/Resolving]

NARRATIVE: CASE EVENT DATE: 20180403
